FAERS Safety Report 17284316 (Version 2)
Quarter: 2020Q1

REPORT INFORMATION
  Report Type: Report from Study
  Country: US (occurrence: US)
  Receive Date: 20200117
  Receipt Date: 20200217
  Transmission Date: 20200409
  Serious: No
  Sender: FDA-Public Use
  Company Number: NVSC2019US046600

PATIENT
  Age: 10 Year
  Sex: Male
  Weight: 40.9 kg

DRUGS (1)
  1. ILARIS [Suspect]
     Active Substance: CANAKINUMAB
     Indication: AUTOINFLAMMATORY DISEASE
     Dosage: 75 MG, Q4W
     Route: 058
     Dates: start: 20190423

REACTIONS (1)
  - Injection site rash [Recovered/Resolved]

NARRATIVE: CASE EVENT DATE: 20191110
